FAERS Safety Report 24048883 (Version 11)
Quarter: 2025Q2

REPORT INFORMATION
  Report Type: Report from Study
  Country: CA (occurrence: CA)
  Receive Date: 20240704
  Receipt Date: 20250622
  Transmission Date: 20250717
  Serious: Yes (Other)
  Sender: ROCHE
  Company Number: CA-ROCHE-10000015025

PATIENT
  Age: 58 Year
  Sex: Male

DRUGS (3)
  1. OCREVUS [Suspect]
     Active Substance: OCRELIZUMAB
     Indication: Primary progressive multiple sclerosis
     Dosage: 300 MG AT DAY 0 AND 14, THEN 600 MG EVERY 6 MONTH.
     Route: 042
     Dates: start: 20231127
  2. AMOXICILLIN [Concomitant]
     Active Substance: AMOXICILLIN
  3. CLAVULANIC ACID [Concomitant]
     Active Substance: CLAVULANIC ACID

REACTIONS (2)
  - Diverticulitis [Recovering/Resolving]
  - Blood test abnormal [Not Recovered/Not Resolved]

NARRATIVE: CASE EVENT DATE: 20240605
